FAERS Safety Report 23897366 (Version 1)
Quarter: 2024Q2

REPORT INFORMATION
  Report Type: Spontaneous
  Country: US (occurrence: US)
  Receive Date: 20240524
  Receipt Date: 20240524
  Transmission Date: 20240716
  Serious: No
  Sender: FDA-Public Use
  Company Number: US-BIOVITRUM-2024-US-007544

PATIENT
  Age: 35 Year
  Sex: Female

DRUGS (1)
  1. KINERET [Suspect]
     Active Substance: ANAKINRA
     Indication: Autoinflammatory disease
     Dosage: DAILY
     Route: 058
     Dates: start: 20210128

REACTIONS (8)
  - Migraine [Unknown]
  - Loss of personal independence in daily activities [Unknown]
  - Pain [Unknown]
  - Depressed mood [Unknown]
  - Emotional disorder [Unknown]
  - Product dose omission issue [Unknown]
  - General physical health deterioration [Unknown]
  - Somnolence [Unknown]
